FAERS Safety Report 15886217 (Version 1)
Quarter: 2019Q1

REPORT INFORMATION
  Report Type: Report from Study
  Country: IR (occurrence: IR)
  Receive Date: 20190129
  Receipt Date: 20190129
  Transmission Date: 20190417
  Serious: Yes (Death, Hospitalization)
  Sender: FDA-Public Use
  Company Number: IR-MYLANLABS-2019M1006409

PATIENT
  Age: 20 Year
  Sex: Male

DRUGS (1)
  1. LIDOCAINE. [Suspect]
     Active Substance: LIDOCAINE
     Indication: PRODUCT USED FOR UNKNOWN INDICATION
     Route: 048

REACTIONS (10)
  - Completed suicide [Fatal]
  - Drug abuse [Fatal]
  - Toxicity to various agents [Fatal]
  - Metabolic acidosis [Fatal]
  - Status epilepticus [Fatal]
  - Hypoxic-ischaemic encephalopathy [Fatal]
  - Cardiac arrest [Fatal]
  - Intentional overdose [Fatal]
  - Ventricular tachycardia [Fatal]
  - Depressed level of consciousness [Fatal]
